FAERS Safety Report 4344795-4 (Version None)
Quarter: 2004Q2

REPORT INFORMATION
  Report Type: 
  Country: None (occurrence: None)
  Receive Date: 20040420
  Receipt Date: 20040409
  Transmission Date: 20050107
  Serious: Yes (Death, Other)
  Sender: FDA-Public Use
  Company Number: CN-SHR-04-023832

PATIENT
  Age: 70 Year
  Sex: Female

DRUGS (1)
  1. ULTRAVIST 300 [Suspect]
     Indication: UROGRAPHY
     Dosage: 50 ML, 1 DOSE, IV BOLUS
     Route: 040
     Dates: start: 20040409, end: 20040409

REACTIONS (6)
  - CARDIAC ARREST [None]
  - CONTRAST MEDIA REACTION [None]
  - CYANOSIS [None]
  - HYPOTENSION [None]
  - MYDRIASIS [None]
  - SALIVARY HYPERSECRETION [None]
